FAERS Safety Report 22085102 (Version 1)
Quarter: 2023Q1

REPORT INFORMATION
  Report Type: Spontaneous
  Country: US (occurrence: US)
  Receive Date: 20230310
  Receipt Date: 20230310
  Transmission Date: 20230418
  Serious: Yes (Hospitalization, Other)
  Sender: FDA-Public Use
  Company Number: US-drreddys-SPO/USA/23/0161849

PATIENT
  Age: 58 Year
  Sex: Male

DRUGS (3)
  1. AMIODARONE HYDROCHLORIDE [Suspect]
     Active Substance: AMIODARONE HYDROCHLORIDE
     Indication: Product used for unknown indication
  2. FLUCYTOSINE [Concomitant]
     Active Substance: FLUCYTOSINE
     Indication: Candida infection
  3. AMPHOTERICIN B [Concomitant]
     Active Substance: AMPHOTERICIN B
     Indication: Candida infection

REACTIONS (1)
  - Atrial fibrillation [Unknown]
